FAERS Safety Report 23206077 (Version 1)
Quarter: 2023Q4

REPORT INFORMATION
  Report Type: Spontaneous
  Country: GT (occurrence: GT)
  Receive Date: 20231120
  Receipt Date: 20231120
  Transmission Date: 20240110
  Serious: Yes (Other)
  Sender: FDA-Public Use
  Company Number: GT-SA-SAC20231117000409

PATIENT
  Age: 58 Year
  Sex: Female

DRUGS (2)
  1. TOUJEO [Suspect]
     Active Substance: INSULIN GLARGINE
     Indication: Diabetes mellitus
     Dosage: 23 IU , QD
     Route: 058
     Dates: start: 2018
  2. AVASTIN [Concomitant]
     Active Substance: BEVACIZUMAB
     Indication: Visual impairment
     Dosage: UNK

REACTIONS (5)
  - Cataract [Recovering/Resolving]
  - Visual impairment [Recovering/Resolving]
  - Retinal operation [Recovering/Resolving]
  - Ocular discomfort [Unknown]
  - Renal disorder [Recovering/Resolving]

NARRATIVE: CASE EVENT DATE: 20200101
